FAERS Safety Report 20937277 (Version 1)
Quarter: 2022Q2

REPORT INFORMATION
  Report Type: Spontaneous
  Country: GT (occurrence: GT)
  Receive Date: 20220609
  Receipt Date: 20220609
  Transmission Date: 20220721
  Serious: Yes (Other)
  Sender: FDA-Public Use
  Company Number: GT-SA-SAC20220606000288

PATIENT
  Age: 83 Year
  Sex: Female

DRUGS (2)
  1. LANTUS SOLOSTAR [Suspect]
     Active Substance: INSULIN GLARGINE
     Indication: Type 2 diabetes mellitus
     Dosage: DOSE/UNIT: 48 IU IN THE MORNING AND 27 OR 28 IU AT NIGHT. FREQUENCY: 24 H
     Route: 058
     Dates: start: 2014
  2. LANTUS SOLOSTAR [Suspect]
     Active Substance: INSULIN GLARGINE
     Dosage: DOSE/UNIT: 27 IU IN THE MORNING AND 15 IU AT NIGHT. FREQUENCY: 24 H
     Route: 058

REACTIONS (4)
  - Glaucoma [Unknown]
  - Blindness [Unknown]
  - Hip fracture [Unknown]
  - Inappropriate schedule of product administration [Unknown]

NARRATIVE: CASE EVENT DATE: 20200101
